FAERS Safety Report 8876040 (Version 1)
Quarter: 2012Q4

REPORT INFORMATION
  Report Type: 
  Country: US (occurrence: US)
  Receive Date: 20121023
  Receipt Date: 20121023
  Transmission Date: 20130627
  Serious: No
  Sender: FDA-Public Use
  Company Number: US-VERTEX PHARMACEUTICAL INC.-2012-023257

PATIENT
  Age: 56 Year
  Sex: Male
  Weight: 91 kg

DRUGS (4)
  1. VX-950 [Suspect]
     Indication: HEPATITIS C
     Dosage: 3 DF, bid
     Route: 048
     Dates: start: 2012
  2. PEGASYS [Concomitant]
     Indication: HEPATITIS C
     Dosage: 180 ?g, UNK
     Route: 058
     Dates: start: 2012
  3. RIBAVIRIN [Concomitant]
     Indication: HEPATITIS C
     Dosage: 3 DF, bid
     Dates: start: 2012
  4. ASPIRIN [Concomitant]

REACTIONS (3)
  - Rash pruritic [Unknown]
  - Anorectal discomfort [Unknown]
  - Nausea [Unknown]
